FAERS Safety Report 15138582 (Version 1)
Quarter: 2018Q3

REPORT INFORMATION
  Report Type: Spontaneous
  Country: PT (occurrence: PT)
  Receive Date: 20180713
  Receipt Date: 20180713
  Transmission Date: 20181010
  Serious: Yes (Other)
  Sender: FDA-Public Use
  Company Number: PT-TEVA-2018-PT-925020

PATIENT
  Age: 35 Year
  Sex: Male

DRUGS (3)
  1. AMOXICILINA + ?CIDO CLAVUL?NICO [Suspect]
     Active Substance: AMOXICILLIN\CLAVULANIC ACID
     Route: 048
     Dates: start: 201508
  2. NAPROXEN. [Concomitant]
     Active Substance: NAPROXEN
  3. TRAMADOL. [Concomitant]
     Active Substance: TRAMADOL

REACTIONS (3)
  - Rash [Recovered/Resolved]
  - Rash papular [Recovered/Resolved]
  - Rash pruritic [Recovered/Resolved]

NARRATIVE: CASE EVENT DATE: 201505
